FAERS Safety Report 5239608-2 (Version None)
Quarter: 2007Q1

REPORT INFORMATION
  Report Type: 
  Country: None (occurrence: None)
  Receive Date: 20070216
  Receipt Date: 20070214
  Transmission Date: 20070707
  Serious: Yes (Hospitalization, Disabling)
  Sender: FDA-Public Use
  Company Number: US--UCBSA-802171

PATIENT
  Age: 35 Year
  Sex: Female

DRUGS (65)
  1. ADVAIR DISKUS 100/50 [Suspect]
     Indication: DRUG USE FOR UNKNOWN INDICATION
     Route: 055
  2. AUGMENTIN '125' [Suspect]
     Indication: DRUG USE FOR UNKNOWN INDICATION
     Dosage: 1750MG PER DAY
     Route: 065
  3. FLUTICASON [Suspect]
     Indication: DRUG USE FOR UNKNOWN INDICATION
  4. BUPROPION HYDROCHLORIDE [Suspect]
     Dosage: 300MG UNKNOWN
  5. XANAX [Suspect]
     Indication: STRESS
     Dosage: 1MG THREE TIMES PER DAY
     Dates: start: 19850101
  6. ZYRTEC [Suspect]
     Indication: MULTIPLE ALLERGIES
  7. LATANOPROST [Suspect]
     Indication: DRUG USE FOR UNKNOWN INDICATION
  8. DEXAMETHASONE [Suspect]
     Indication: DRUG USE FOR UNKNOWN INDICATION
  9. CARISOPRODOL [Suspect]
     Indication: DRUG USE FOR UNKNOWN INDICATION
     Route: 048
  10. CLOTRIMAZOLE [Suspect]
     Indication: DRUG USE FOR UNKNOWN INDICATION
  11. CLONAZEPAM [Suspect]
  12. TRAZODONE HYDROCHLORIDE [Suspect]
     Indication: DRUG USE FOR UNKNOWN INDICATION
  13. GABAPENTIN [Suspect]
  14. FLUOXETINE HYDROCHLORIDE [Suspect]
     Indication: DRUG USE FOR UNKNOWN INDICATION
  15. ATENOLOL [Suspect]
     Dosage: 50MG PER DAY
  16. MELOXICAM [Suspect]
     Indication: DRUG USE FOR UNKNOWN INDICATION
  17. ZYDONE [Suspect]
     Indication: DRUG USE FOR UNKNOWN INDICATION
  18. OLMESARTAN MEDOXOMIL [Suspect]
     Dosage: 40MG PER DAY
  19. ALLEGRA D 24 HOUR [Suspect]
     Indication: DRUG USE FOR UNKNOWN INDICATION
  20. MOMETASONE FUROATE [Suspect]
     Indication: DRUG USE FOR UNKNOWN INDICATION
  21. CANDESARTAN CILEXETIL [Suspect]
     Indication: DRUG USE FOR UNKNOWN INDICATION
  22. LANSOPRAZOLE [Suspect]
     Indication: DRUG USE FOR UNKNOWN INDICATION
  23. FLUCONAZOLE [Suspect]
     Indication: DRUG USE FOR UNKNOWN INDICATION
  24. ESOMEPRAZOLE MAGNESIUM [Suspect]
     Indication: DRUG USE FOR UNKNOWN INDICATION
  25. LOTRISONE [Suspect]
     Indication: DRUG USE FOR UNKNOWN INDICATION
  26. RIZATRIPTAN BENZOATE [Suspect]
     Indication: DRUG USE FOR UNKNOWN INDICATION
  27. LOMOTIL [Suspect]
     Indication: DRUG USE FOR UNKNOWN INDICATION
  28. KETOCONAZOLE [Suspect]
     Indication: DRUG USE FOR UNKNOWN INDICATION
     Dosage: 200MG PER DAY
  29. SINEMET [Suspect]
     Indication: DRUG USE FOR UNKNOWN INDICATION
  30. TRAMADOL HCL [Suspect]
     Indication: DRUG USE FOR UNKNOWN INDICATION
  31. METAXALONE [Suspect]
  32. BACTRIM DS [Suspect]
     Indication: DRUG USE FOR UNKNOWN INDICATION
     Dosage: 2U UNKNOWN
  33. PETHIDINE HYDROCHLORIDE [Suspect]
     Indication: DRUG USE FOR UNKNOWN INDICATION
  34. PERCOCET [Suspect]
     Indication: DRUG USE FOR UNKNOWN INDICATION
  35. CODICLEAR [Suspect]
     Indication: DRUG USE FOR UNKNOWN INDICATION
  36. QUININE [Suspect]
     Indication: DRUG USE FOR UNKNOWN INDICATION
  37. MOXIFLOXACIN HYDROCHLORIDE [Suspect]
     Indication: DRUG USE FOR UNKNOWN INDICATION
  38. ROFECOXIB [Suspect]
     Indication: DRUG USE FOR UNKNOWN INDICATION
  39. CEFAZOLIN [Suspect]
     Indication: DRUG USE FOR UNKNOWN INDICATION
     Dosage: 500MG PER DAY
     Route: 048
  40. DURATUSS [Suspect]
     Indication: DRUG USE FOR UNKNOWN INDICATION
  41. LORTAB [Suspect]
     Indication: DRUG USE FOR UNKNOWN INDICATION
  42. ERYTHROMYCIN [Suspect]
     Indication: DRUG USE FOR UNKNOWN INDICATION
     Dosage: 500MG PER DAY
  43. CEPHALEXIN MONOHYDRATE [Suspect]
     Indication: DRUG USE FOR UNKNOWN INDICATION
     Dosage: 1500MG PER DAY
     Route: 048
  44. MUPIROCIN [Suspect]
     Indication: DRUG USE FOR UNKNOWN INDICATION
     Route: 061
  45. OSELTAMIVIR [Suspect]
     Indication: DRUG USE FOR UNKNOWN INDICATION
     Dosage: 150MG PER DAY
  46. ENDAL-HD [Suspect]
     Indication: DRUG USE FOR UNKNOWN INDICATION
  47. TRIAMCINOLONE ACETONIDE [Suspect]
     Indication: DRUG USE FOR UNKNOWN INDICATION
     Route: 030
  48. OMEPRAZOLE [Suspect]
     Indication: DRUG USE FOR UNKNOWN INDICATION
  49. EXGEST LA [Suspect]
     Indication: DRUG USE FOR UNKNOWN INDICATION
     Dosage: 2U UNKNOWN
     Route: 048
  50. MESCOLOR [Suspect]
     Indication: DRUG USE FOR UNKNOWN INDICATION
     Dosage: 2U UNKNOWN
  51. TRIAZOLAM [Suspect]
     Indication: DRUG USE FOR UNKNOWN INDICATION
     Dosage: .25MG PER DAY
  52. LORCET-HD [Suspect]
     Indication: DRUG USE FOR UNKNOWN INDICATION
     Dosage: 2U UNKNOWN
     Route: 048
  53. ECONAZOLE NITRATE [Suspect]
     Indication: DRUG USE FOR UNKNOWN INDICATION
  54. ARTHROTEC [Suspect]
     Indication: DRUG USE FOR UNKNOWN INDICATION
     Dosage: 150MG PER DAY
  55. DIAZEPAM [Suspect]
     Indication: DRUG USE FOR UNKNOWN INDICATION
  56. CELECOXIB [Suspect]
     Indication: PAIN
     Dosage: 200MG PER DAY
  57. SUCRALFATE [Suspect]
     Indication: DRUG USE FOR UNKNOWN INDICATION
  58. LASIX [Suspect]
     Dosage: 40MG PER DAY
  59. VERAPAMIL [Suspect]
     Dosage: 120MG PER DAY
  60. METOPROLOL SUCCINATE [Suspect]
  61. LISINOPRIL [Suspect]
  62. BISOPROLOL FUMARATE [Suspect]
  63. AMLODIPINE [Suspect]
     Dosage: 5MG PER DAY
  64. LOSARTAN POTASSIUM [Suspect]
  65. COVERA-HS [Suspect]
     Dates: start: 20020101

REACTIONS (23)
  - ABDOMINAL PAIN UPPER [None]
  - ARTHRITIS [None]
  - ARTHROPOD BITE [None]
  - BLOOD CREATININE INCREASED [None]
  - BRONCHITIS [None]
  - BRONCHOSPASM [None]
  - CHOLELITHIASIS [None]
  - COUGH [None]
  - DEEP VEIN THROMBOSIS [None]
  - DIZZINESS [None]
  - GLAUCOMA [None]
  - MALAISE [None]
  - NEUROPATHY PERIPHERAL [None]
  - OSTEOARTHRITIS [None]
  - PAIN IN EXTREMITY [None]
  - PURPURA SENILE [None]
  - RENAL FAILURE [None]
  - RESORPTION BONE INCREASED [None]
  - TARSAL TUNNEL SYNDROME [None]
  - THROMBOPHLEBITIS SUPERFICIAL [None]
  - VASCULITIS [None]
  - VERTIGO POSITIONAL [None]
  - VESTIBULAR DISORDER [None]
